FAERS Safety Report 6701879-0 (Version None)
Quarter: 2010Q2

REPORT INFORMATION
  Report Type: 
  Country: None (occurrence: None)
  Receive Date: 20100429
  Receipt Date: 20100420
  Transmission Date: 20101027
  Serious: Yes (Other)
  Sender: FDA-Public Use
  Company Number: AU-ASTRAZENECA-2010SE18076

PATIENT
  Age: 5 Day
  Sex: Male

DRUGS (3)
  1. XYLOCAINE [Suspect]
     Route: 065
     Dates: start: 20091124, end: 20091124
  2. MIDAZOLAM HCL [Suspect]
     Route: 065
     Dates: start: 20091124, end: 20091124
  3. HYALASE [Suspect]
     Dosage: 300
     Route: 065
     Dates: start: 20091124, end: 20091124

REACTIONS (3)
  - NERVE INJURY [None]
  - PARAESTHESIA [None]
  - PERIORBITAL OEDEMA [None]
